FAERS Safety Report 24588062 (Version 1)
Quarter: 2024Q4

REPORT INFORMATION
  Report Type: Spontaneous
  Country: GB (occurrence: GB)
  Receive Date: 20241107
  Receipt Date: 20241107
  Transmission Date: 20250114
  Serious: Yes (Other)
  Sender: TEVA
  Company Number: GB-MHRA-TPP4852299C9095532YC1728998490492

PATIENT
  Age: 77 Year
  Sex: Female
  Weight: 76 kg

DRUGS (10)
  1. DOXAZOSIN [Suspect]
     Active Substance: DOXAZOSIN\DOXAZOSIN MESYLATE
     Indication: Ill-defined disorder
     Dosage: REVIEW WITH HOME BP READINGS
     Route: 065
     Dates: start: 20240924
  2. ATORVASTATIN [Concomitant]
     Active Substance: ATORVASTATIN
     Indication: Ill-defined disorder
     Dosage: AT NIGHT
     Dates: start: 20240223
  3. FAMOTIDINE [Concomitant]
     Active Substance: FAMOTIDINE
     Indication: Ill-defined disorder
     Dosage: USE AS DIRECTED; DURATION: 29 DAYS
     Dates: start: 20240814, end: 20240911
  4. FELODIPINE [Concomitant]
     Active Substance: FELODIPINE
     Indication: Ill-defined disorder
     Dosage: TAKE 3 TABLETS DAILY TOTAL 7.5MG
     Dates: start: 20240109, end: 20240814
  5. XAILIN NIGHT [Concomitant]
     Indication: Ill-defined disorder
     Dosage: USE AT NIGHT TO BOTH EYES AS DIRECTED
     Dates: start: 20240714
  6. BISOPROLOL [Concomitant]
     Active Substance: BISOPROLOL\BISOPROLOL FUMARATE
     Indication: Ill-defined disorder
     Dosage: DAILY DOSE: 1 DOSAGE FORM
     Dates: start: 20240326
  7. HYLO NIGHT [Concomitant]
     Indication: Ill-defined disorder
     Dosage: USE AS DIRECTED; DURATION: 29 DAYS
     Dates: start: 20240903, end: 20241001
  8. CLOPIDOGREL [Concomitant]
     Active Substance: CLOPIDOGREL BISULFATE
     Indication: Ill-defined disorder
     Dosage: DAILY DOSE: 1 DOSAGE FORM
     Dates: start: 20240523
  9. LISINOPRIL [Concomitant]
     Active Substance: LISINOPRIL
     Indication: Ill-defined disorder
     Dates: start: 20241004
  10. LANSOPRAZOLE [Concomitant]
     Active Substance: LANSOPRAZOLE
     Indication: Ill-defined disorder
     Dosage: DAILY DOSE: 1 DOSAGE FORM
     Dates: start: 20240617

REACTIONS (1)
  - Brain fog [Recovered/Resolved]
